FAERS Safety Report 12166671 (Version 2)
Quarter: 2016Q2

REPORT INFORMATION
  Report Type: Spontaneous
  Country: US (occurrence: US)
  Receive Date: 20160310
  Receipt Date: 20160420
  Transmission Date: 20160815
  Serious: Yes (Disabling, Other)
  Sender: FDA-Public Use
  Company Number: US-PFIZER INC-2016135406

PATIENT
  Age: 60 Year
  Sex: Female
  Weight: 72.56 kg

DRUGS (7)
  1. LYRICA [Suspect]
     Active Substance: PREGABALIN
     Indication: SPINAL DISORDER
  2. ZOMIG [Concomitant]
     Active Substance: ZOLMITRIPTAN
     Indication: MIGRAINE
     Dosage: 5 MG, WHEN SHE HAD BAD MIGRAINE
  3. ASPIRIN. [Concomitant]
     Active Substance: ASPIRIN
     Dosage: 81 MG, UNK
  4. DIAZEPAM. [Concomitant]
     Active Substance: DIAZEPAM
     Indication: ANXIETY
     Dosage: UNK, AS NEEDED
  5. CARVEDILOL. [Concomitant]
     Active Substance: CARVEDILOL
     Dosage: 3.125 MG, 2X/DAY
  6. PROMETHAZINE [Concomitant]
     Active Substance: PROMETHAZINE\PROMETHAZINE HYDROCHLORIDE
     Indication: NAUSEA
     Dosage: 25 MG, AS NEEDED
  7. LYRICA [Suspect]
     Active Substance: PREGABALIN
     Indication: NERVE INJURY
     Dosage: 300 MG, 2X/DAY
     Route: 048
     Dates: start: 200510

REACTIONS (6)
  - Back disorder [Unknown]
  - Ovarian neoplasm [Unknown]
  - Pain in extremity [Not Recovered/Not Resolved]
  - Hyperaesthesia [Unknown]
  - Limb discomfort [Unknown]
  - Weight increased [Unknown]

NARRATIVE: CASE EVENT DATE: 2015
